FAERS Safety Report 7439382-5 (Version None)
Quarter: 2011Q2

REPORT INFORMATION
  Report Type: 
  Country: None (occurrence: None)
  Receive Date: 20110427
  Receipt Date: 20110421
  Transmission Date: 20111010
  Serious: Yes (Death, Other)
  Sender: FDA-Public Use
  Company Number: US-BAYER-2011-035490

PATIENT
  Sex: Female

DRUGS (1)
  1. YAZ [Suspect]
     Indication: PRODUCT USED FOR UNKNOWN INDICATION

REACTIONS (11)
  - PULMONARY EMBOLISM [None]
  - ACUTE LUNG INJURY [None]
  - DEATH [None]
  - RESPIRATORY FAILURE [None]
  - PULMONARY INFARCTION [None]
  - RESPIRATORY DISTRESS [None]
  - CARDIOGENIC SHOCK [None]
  - HYPERVENTILATION [None]
  - PAIN [None]
  - TACHYCARDIA [None]
  - INJURY [None]
